FAERS Safety Report 8756714 (Version 3)
Quarter: 2012Q4

REPORT INFORMATION
  Report Type: 
  Country: BR (occurrence: BR)
  Receive Date: 20120828
  Receipt Date: 20121011
  Transmission Date: 20130627
  Serious: Yes (Other)
  Sender: FDA-Public Use
  Company Number: PHHY2012BR065147

PATIENT
  Sex: Female

DRUGS (6)
  1. SANDOSTATIN LAR [Suspect]
     Indication: ACROMEGALY
     Dosage: 1 DF, every 28 days
     Route: 030
     Dates: start: 20120625
  2. CHEMOTHERAPEUTICS NOS [Concomitant]
  3. FERROUS SULFATE [Concomitant]
     Indication: ANAEMIA
     Dosage: 900 mg, daily
  4. IMIPRAMINE [Concomitant]
     Indication: DEPRESSION
     Dosage: 3 DF, daily
     Route: 048
     Dates: start: 2009
  5. CARVEDILOL [Concomitant]
     Indication: CARDIAC DISORDER
     Dosage: 1 DF, BID
     Route: 048
  6. ENALAPRIL MALEATE [Concomitant]
     Indication: HYPERTENSION
     Dosage: 1 DF, BID
     Route: 048

REACTIONS (8)
  - Oligomenorrhoea [Recovering/Resolving]
  - Depression [Recovering/Resolving]
  - Abasia [Recovering/Resolving]
  - Memory impairment [Recovering/Resolving]
  - Chest pain [Recovering/Resolving]
  - Discomfort [Unknown]
  - Vasodilatation [Recovering/Resolving]
  - Feeling abnormal [Recovering/Resolving]
